FAERS Safety Report 5201656-6 (Version None)
Quarter: 2006Q4

REPORT INFORMATION
  Report Type: 
  Country: None (occurrence: None)
  Receive Date: 20061010
  Receipt Date: 20051208
  Transmission Date: 20070319
  Serious: No
  Sender: FDA-Public Use
  Company Number: 05P-163-0319009-00

PATIENT
  Age: 50 Year
  Sex: Male
  Weight: 91.6266 kg

DRUGS (2)
  1. TRICOR [Suspect]
     Indication: BLOOD TRIGLYCERIDES INCREASED
     Dosage: 160 MG, 1 IN 1 D, PER ORAL
     Route: 048
     Dates: start: 20040601, end: 20050201
  2. TRICOR [Suspect]
     Indication: BLOOD TRIGLYCERIDES INCREASED
     Dosage: 145 MG, 1 IN 1 D, PER ORAL
     Route: 048
     Dates: start: 20050201, end: 20051107

REACTIONS (3)
  - CHOLELITHIASIS [None]
  - INCREASED APPETITE [None]
  - WEIGHT INCREASED [None]
